FAERS Safety Report 8840510 (Version 1)
Quarter: 2012Q4

REPORT INFORMATION
  Report Type: 
  Country: US (occurrence: US)
  Receive Date: 20121015
  Receipt Date: 20121015
  Transmission Date: 20130627
  Serious: Yes (Death)
  Sender: FDA-Public Use
  Company Number: US-ROCHE-1109854

PATIENT
  Sex: Female

DRUGS (3)
  1. NUTROPIN [Suspect]
     Indication: HYPOPITUITARISM
  2. SYNTHROID [Concomitant]
  3. HYDROCORTISONE [Concomitant]

REACTIONS (4)
  - Death [Fatal]
  - Lipids increased [Unknown]
  - Osteoporosis [Unknown]
  - Insulin-like growth factor decreased [Unknown]
